FAERS Safety Report 8222615 (Version 4)
Quarter: 2014Q4

REPORT INFORMATION
  Report Type: Spontaneous
  Country: US (occurrence: US)
  Receive Date: 20111102
  Receipt Date: 20141010
  Transmission Date: 20150529
  Serious: Yes (Death, Hospitalization, Other)
  Sender: FDA-Public Use
  Company Number: US-ASTRAZENECA-2011SE64379

PATIENT
  Age: 71 Year
  Sex: Female
  Weight: 91.6 kg

DRUGS (29)
  1. NEXIUM [Suspect]
     Active Substance: ESOMEPRAZOLE MAGNESIUM
     Indication: GASTROOESOPHAGEAL REFLUX DISEASE
     Route: 048
  2. XOPENEX [Concomitant]
     Active Substance: LEVALBUTEROL HYDROCHLORIDE
     Route: 055
  3. MUCOMYST [Concomitant]
     Active Substance: ACETYLCYSTEINE
  4. ZYRTEC [Concomitant]
     Active Substance: CETIRIZINE HYDROCHLORIDE
     Route: 048
  5. ZOCOR [Concomitant]
     Active Substance: SIMVASTATIN
     Route: 048
  6. ALVESCO [Concomitant]
     Active Substance: CICLESONIDE
     Route: 055
  7. CARDURA [Concomitant]
     Active Substance: DOXAZOSIN MESYLATE
     Route: 048
  8. XANAX [Concomitant]
     Active Substance: ALPRAZOLAM
     Indication: ANXIETY
     Dosage: 0.5 MG EVERY 12 HOURS AS NEEDED
     Route: 048
  9. CALCIUM-VITAMIN D [Concomitant]
     Dosage: CALCIUM 600 + D TWICE DAILY
     Route: 048
  10. DOXYCYCLINE HYCLATE. [Concomitant]
     Active Substance: DOXYCYCLINE HYCLATE
     Route: 048
  11. SINGULAIR [Concomitant]
     Active Substance: MONTELUKAST SODIUM
     Route: 048
  12. SODIUM MEDROL [Concomitant]
  13. VERAPAMIL [Concomitant]
     Active Substance: VERAPAMIL HYDROCHLORIDE
     Route: 048
  14. XOPENEX [Concomitant]
     Active Substance: LEVALBUTEROL HYDROCHLORIDE
     Route: 055
  15. CELEXA [Concomitant]
     Active Substance: CITALOPRAM HYDROBROMIDE
     Route: 048
  16. VITAMIN D [Concomitant]
     Active Substance: CHOLECALCIFEROL
     Route: 048
  17. SYSTANE (HYPROMELLOSE 2910 (4000 MPA.S)) [Concomitant]
     Active Substance: HYPROMELLOSE 2910 (4000 MPA.S)
     Dosage: 4 DROPS BOTH EYES DAILY
  18. NEXIUM [Suspect]
     Active Substance: ESOMEPRAZOLE MAGNESIUM
     Indication: GASTROOESOPHAGEAL REFLUX DISEASE
     Route: 048
     Dates: start: 20090604, end: 20111203
  19. BROVANA [Concomitant]
     Active Substance: ARFORMOTEROL TARTRATE
     Route: 055
  20. CHOLESTYRAMINE. [Concomitant]
     Active Substance: CHOLESTYRAMINE
     Route: 048
  21. NOVOLOG [Concomitant]
     Active Substance: INSULIN ASPART
     Dosage: BEFORE EATING
  22. VITAMIN B12 [Concomitant]
     Active Substance: CYANOCOBALAMIN
     Route: 048
  23. MEDROL [Concomitant]
     Active Substance: METHYLPREDNISOLONE
     Dosage: 4 MG ONCE SIX DAYS
     Route: 048
  24. ONCE A DAY MAX [Concomitant]
     Route: 048
  25. KLOR CON [Concomitant]
     Route: 048
  26. MAGNESIUM [Concomitant]
     Active Substance: MAGNESIUM
     Route: 048
  27. ACTONEL [Concomitant]
     Active Substance: RISEDRONATE SODIUM
     Route: 048
  28. ALVESCO HFA [Concomitant]
     Route: 055
  29. LASIX [Concomitant]
     Active Substance: FUROSEMIDE
     Route: 048

REACTIONS (16)
  - Chronic obstructive pulmonary disease [Unknown]
  - Pulmonary mass [Unknown]
  - Hypervolaemia [Recovered/Resolved]
  - Death [Fatal]
  - Dyspnoea [Unknown]
  - Emphysema [Unknown]
  - Skin injury [Recovered/Resolved]
  - Lipids increased [Unknown]
  - Leukocytosis [Unknown]
  - Blood glucose increased [Unknown]
  - Pain [Recovered/Resolved]
  - Glycosylated haemoglobin increased [Unknown]
  - Asthma [Unknown]
  - Haemophilus infection [Unknown]
  - Osteopenia [Unknown]
  - Hypovolaemia [Recovered/Resolved]

NARRATIVE: CASE EVENT DATE: 2009
